FAERS Safety Report 4723689-6 (Version None)
Quarter: 2005Q3

REPORT INFORMATION
  Report Type: 
  Country: None (occurrence: None)
  Receive Date: 20050720
  Receipt Date: 20050720
  Transmission Date: 20060218
  Serious: Yes (Hospitalization)
  Sender: FDA-Public Use
  Company Number: None

PATIENT
  Age: 85 Year
  Sex: Male

DRUGS (2)
  1. CIPROFLOXACIN [Suspect]
     Dosage: 500 MG PO BID
     Route: 048
  2. WARFARIN [Suspect]
     Dosage: 6 MG PO QD
     Route: 048

REACTIONS (3)
  - DIARRHOEA [None]
  - DIZZINESS POSTURAL [None]
  - INTERNATIONAL NORMALISED RATIO INCREASED [None]
